FAERS Safety Report 11439735 (Version 1)
Quarter: 2015Q3

REPORT INFORMATION
  Report Type: Spontaneous
  Country: US (occurrence: US)
  Receive Date: 20150901
  Receipt Date: 20150901
  Transmission Date: 20151125
  Serious: Yes (Hospitalization)
  Sender: FDA-Public Use
  Company Number: US-ROCHE-1142009

PATIENT
  Sex: Female

DRUGS (3)
  1. PEGASYS [Suspect]
     Active Substance: PEGINTERFERON ALFA-2A
     Indication: PRODUCT USED FOR UNKNOWN INDICATION
     Route: 065
  2. RIBAVIRIN. [Suspect]
     Active Substance: RIBAVIRIN
     Indication: PRODUCT USED FOR UNKNOWN INDICATION
     Route: 065
  3. INCIVEK [Concomitant]
     Active Substance: TELAPREVIR

REACTIONS (7)
  - Alopecia [Unknown]
  - Haematotoxicity [Unknown]
  - Scar [Unknown]
  - Goitre [Unknown]
  - Cellulitis [Unknown]
  - Pain [Unknown]
  - Hypersensitivity [Unknown]
